FAERS Safety Report 7429915-7 (Version None)
Quarter: 2011Q2

REPORT INFORMATION
  Report Type: 
  Country: None (occurrence: None)
  Receive Date: 20110421
  Receipt Date: 20110413
  Transmission Date: 20111010
  Serious: Yes (Hospitalization, Other)
  Sender: FDA-Public Use
  Company Number: HR-B.I. PHARMACEUTICALS,INC./RIDGEFIELD-2011-DE-02486GD

PATIENT
  Age: 60 Year
  Sex: Male

DRUGS (5)
  1. MELOXICAM [Suspect]
     Indication: OSTEOARTHRITIS
     Dosage: 15 MG
     Dates: start: 20090101
  2. BISOPROLOL FUMARATE [Concomitant]
     Dosage: 2.5 MG
  3. LOSARTAN [Concomitant]
     Dosage: 50 MG
  4. PANTOPRAZOLE [Concomitant]
     Dosage: 40 MG
  5. ATORVASTATIN [Concomitant]
     Dosage: 20 MG

REACTIONS (5)
  - URINE OUTPUT DECREASED [None]
  - GLOMERULONEPHRITIS MINIMAL LESION [None]
  - RENAL IMPAIRMENT [None]
  - NEPHROTIC SYNDROME [None]
  - DRUG HYPERSENSITIVITY [None]
